FAERS Safety Report 4999161-5 (Version None)
Quarter: 2006Q2

REPORT INFORMATION
  Report Type: 
  Country: None (occurrence: None)
  Receive Date: 20060511
  Receipt Date: 20050707
  Transmission Date: 20061013
  Serious: Yes (Hospitalization)
  Sender: FDA-Public Use
  Company Number: PHHO2005JP11107

PATIENT
  Age: 74 Year
  Sex: Male
  Weight: 68 kg

DRUGS (18)
  1. ASPIRIN [Concomitant]
     Indication: ANGINA PECTORIS
  2. BLOPRESS [Concomitant]
     Indication: HYPERTENSION
  3. GLEEVEC [Suspect]
     Indication: CHRONIC MYELOID LEUKAEMIA
     Dosage: 400 MG, QD
     Route: 048
     Dates: start: 20040113
  4. GLEEVEC [Suspect]
     Dosage: 400 MG, QD
     Route: 048
     Dates: start: 20060211
  5. SIGMART [Concomitant]
     Indication: HYPERTENSION
  6. MUCOSTA [Concomitant]
     Indication: PROPHYLAXIS AGAINST GASTROINTESTINAL ULCER
  7. RISUMIC [Concomitant]
     Indication: ORTHOSTATIC HYPOTENSION
  8. HERBESSOR R [Concomitant]
     Indication: HYPERTENSION
  9. SALOBEL [Concomitant]
     Indication: HYPERURICAEMIA
  10. MEIACT [Concomitant]
     Dates: start: 20040113, end: 20040115
  11. URALYT-U [Concomitant]
     Indication: HYPERURICAEMIA
     Dates: start: 20040116, end: 20050427
  12. PERYCIT [Concomitant]
     Indication: HYPERLIPIDAEMIA
  13. ZANTAC [Concomitant]
     Indication: GASTRIC MUCOSAL LESION
     Dates: start: 20060110, end: 20060130
  14. SAWACILLIN [Concomitant]
     Indication: GINGIVITIS
     Dates: start: 20060323, end: 20060326
  15. SAWACILLIN [Concomitant]
     Dates: start: 20060331, end: 20060406
  16. FLOMOX [Concomitant]
     Dates: start: 20060317, end: 20060319
  17. LOXONIN [Concomitant]
     Indication: GINGIVITIS
     Dates: start: 20060317, end: 20060327
  18. CLARITHROMYCIN [Concomitant]
     Indication: HELICOBACTER INFECTION
     Dates: start: 20060331, end: 20060406

REACTIONS (4)
  - ENDOSCOPY UPPER GASTROINTESTINAL TRACT [None]
  - GASTRIC ANTRAL VASCULAR ECTASIA [None]
  - GASTRIC HAEMORRHAGE [None]
  - IRON DEFICIENCY ANAEMIA [None]
